FAERS Safety Report 4801964-4 (Version None)
Quarter: 2005Q4

REPORT INFORMATION
  Report Type: 
  Country: None (occurrence: None)
  Receive Date: 20051018
  Receipt Date: 20051004
  Transmission Date: 20060501
  Serious: Yes (Death)
  Sender: FDA-Public Use
  Company Number: NZ-MERCK-0510NZL00009

PATIENT

DRUGS (1)
  1. VIOXX [Suspect]
     Route: 065

REACTIONS (2)
  - CARDIOVASCULAR DISORDER [None]
  - DEATH [None]
